FAERS Safety Report 13069814 (Version 6)
Quarter: 2018Q4

REPORT INFORMATION
  Report Type: Spontaneous
  Country: US (occurrence: US)
  Receive Date: 20161228
  Receipt Date: 20181018
  Transmission Date: 20190204
  Serious: Yes (Other)
  Sender: FDA-Public Use
  Company Number: US-INCYTE CORPORATION-2016IN008244

PATIENT

DRUGS (2)
  1. JAKAFI [Suspect]
     Active Substance: RUXOLITINIB
     Indication: POLYCYTHAEMIA VERA
     Dosage: 10 MG, BID
     Route: 048
     Dates: start: 20160611
  2. CLOPIDOGREL [Concomitant]
     Active Substance: CLOPIDOGREL BISULFATE
     Indication: PRODUCT USED FOR UNKNOWN INDICATION
     Route: 065

REACTIONS (20)
  - Blood iron decreased [Unknown]
  - Weight decreased [Unknown]
  - Waist circumference increased [Unknown]
  - High density lipoprotein increased [Unknown]
  - Defaecation urgency [Unknown]
  - Dry throat [Unknown]
  - Upper respiratory tract congestion [Unknown]
  - Exposure to mould [Unknown]
  - Arthralgia [Recovered/Resolved]
  - Feeling abnormal [Recovering/Resolving]
  - Rhinorrhoea [Unknown]
  - Malaise [Recovering/Resolving]
  - Arthropathy [Unknown]
  - Pain in extremity [Unknown]
  - Eating disorder [Unknown]
  - Decreased appetite [Unknown]
  - Herpes zoster [Recovered/Resolved]
  - Headache [Unknown]
  - Platelet count increased [Recovered/Resolved]
  - Diabetes mellitus [Unknown]

NARRATIVE: CASE EVENT DATE: 20161220
